FAERS Safety Report 6990761-X (Version None)
Quarter: 2010Q3

REPORT INFORMATION
  Report Type: 
  Country: None (occurrence: None)
  Receive Date: 20100916
  Receipt Date: 20090812
  Transmission Date: 20110219
  Serious: Yes (Other)
  Sender: FDA-Public Use
  Company Number: HQWYE700311OCT04

PATIENT
  Sex: Female
  Weight: 86.26 kg

DRUGS (4)
  1. PREMARIN [Suspect]
     Indication: HORMONE REPLACEMENT THERAPY
     Dosage: UNSPECIFIED
     Route: 048
     Dates: start: 19930101, end: 20030101
  2. PROVERA [Suspect]
  3. CYCRIN [Suspect]
  4. MEDROXYPROGESTERONE [Suspect]
     Indication: HORMONE REPLACEMENT THERAPY
     Dosage: UNSPECIFIED
     Route: 048
     Dates: start: 19930101, end: 20030101

REACTIONS (1)
  - BREAST CANCER [None]
